FAERS Safety Report 5113892-8 (Version None)
Quarter: 2006Q3

REPORT INFORMATION
  Report Type: 
  Country: None (occurrence: None)
  Receive Date: 20060921
  Receipt Date: 20060907
  Transmission Date: 20061208
  Serious: Yes (Other)
  Sender: FDA-Public Use
  Company Number: 2006S1000052

PATIENT
  Sex: Male

DRUGS (2)
  1. CUBICIN [Suspect]
     Indication: OSTEOMYELITIS
     Dosage: 6 MG/KG
  2. CUBICIN [Suspect]
     Indication: WOUND INFECTION STAPHYLOCOCCAL
     Dosage: 6 MG/KG

REACTIONS (2)
  - CATHETER BACTERAEMIA [None]
  - STAPHYLOCOCCAL BACTERAEMIA [None]
